FAERS Safety Report 15938257 (Version 1)
Quarter: 2019Q1

REPORT INFORMATION
  Report Type: Spontaneous
  Country: US (occurrence: US)
  Receive Date: 20190208
  Receipt Date: 20190208
  Transmission Date: 20190417
  Serious: No
  Sender: FDA-Public Use
  Company Number: US-BEH-2019099211

PATIENT
  Age: 49 Year
  Sex: Female

DRUGS (1)
  1. HIZENTRA [Suspect]
     Active Substance: HUMAN IMMUNOGLOBULIN G
     Indication: IMMUNODEFICIENCY COMMON VARIABLE
     Dosage: 10 G, QW
     Route: 058
     Dates: start: 20170726

REACTIONS (4)
  - Infusion site extravasation [Unknown]
  - Infusion site scar [Unknown]
  - Infusion site irritation [Unknown]
  - Infusion site nodule [Not Recovered/Not Resolved]

NARRATIVE: CASE EVENT DATE: 20190125
